FAERS Safety Report 18305177 (Version 4)
Quarter: 2020Q4

REPORT INFORMATION
  Report Type: Spontaneous
  Country: IT (occurrence: IT)
  Receive Date: 20200924
  Receipt Date: 20201026
  Transmission Date: 20210113
  Serious: Yes (Life-Threatening, Hospitalization, Other)
  Sender: FDA-Public Use
  Company Number: IT-AUROBINDO-AUR-APL-2020-049223

PATIENT
  Age: 62 Year
  Sex: Male

DRUGS (3)
  1. AMOXICILLIN. [Suspect]
     Active Substance: AMOXICILLIN
     Indication: DENTAL DISORDER PROPHYLAXIS
     Dosage: 500 MILLIGRAM
     Route: 048
  2. AMOXICILLIN. [Suspect]
     Active Substance: AMOXICILLIN
     Indication: INTERVENTIONAL PROCEDURE
  3. AMOXICILLIN. [Suspect]
     Active Substance: AMOXICILLIN
     Indication: DENTAL CARE

REACTIONS (24)
  - Stenosis [Unknown]
  - Troponin increased [Unknown]
  - Cardiac arrest [Recovered/Resolved]
  - Hypertensive heart disease [Unknown]
  - Asthenia [Unknown]
  - Electrocardiogram ST segment elevation [Unknown]
  - Coronary artery stenosis [Recovering/Resolving]
  - Miosis [Unknown]
  - Emphysema [Unknown]
  - Hypoxia [Recovered/Resolved]
  - Hypercapnia [Recovered/Resolved]
  - Dyspnoea [Recovering/Resolving]
  - Metabolic acidosis [Recovered/Resolved]
  - White blood cell count increased [Unknown]
  - Anaphylactic reaction [Recovering/Resolving]
  - Acute coronary syndrome [Unknown]
  - Kounis syndrome [Recovered/Resolved]
  - Cyanosis [Recovering/Resolving]
  - Sinus disorder [Unknown]
  - Electrocardiogram ST segment depression [Unknown]
  - Coma [Recovered/Resolved]
  - Supraventricular extrasystoles [Unknown]
  - Ventricular extrasystoles [Unknown]
  - Tachycardia [Recovered/Resolved]
